FAERS Safety Report 20907796 (Version 1)
Quarter: 2022Q2

REPORT INFORMATION
  Report Type: Spontaneous
  Country: HR (occurrence: None)
  Receive Date: 20220602
  Receipt Date: 20220602
  Transmission Date: 20220721
  Serious: Yes (Hospitalization, Other)
  Sender: FDA-Public Use
  Company Number: 2022A199974

PATIENT
  Age: 66 Year
  Sex: Female
  Weight: 69 kg

DRUGS (14)
  1. TICAGRELOR [Suspect]
     Active Substance: TICAGRELOR
     Dosage: UNK
     Route: 048
  2. EZETIMIBE [Suspect]
     Active Substance: EZETIMIBE
     Dosage: UNK
     Route: 065
  3. PERINDOPRIL [Suspect]
     Active Substance: PERINDOPRIL
     Dosage: UNK
     Route: 065
  4. SACUBITRIL\VALSARTAN [Suspect]
     Active Substance: SACUBITRIL\VALSARTAN
     Dosage: UNK
     Route: 065
  5. POTASSIUM CHLORIDE [Suspect]
     Active Substance: POTASSIUM CHLORIDE
     Dosage: UNK1.0G UNKNOWN
     Route: 065
  6. EPLERENONE [Suspect]
     Active Substance: EPLERENONE
     Route: 065
  7. NEBIVOLOL [Suspect]
     Active Substance: NEBIVOLOL
     Dosage: UNK
     Route: 065
  8. BISOPROLOL [Suspect]
     Active Substance: BISOPROLOL
     Route: 065
  9. ASPIRIN [Suspect]
     Active Substance: ASPIRIN
     Indication: Implantable defibrillator insertion
     Dosage: UNK
     Route: 065
  10. ATORVASTATIN [Suspect]
     Active Substance: ATORVASTATIN
     Dosage: UNK
     Route: 065
  11. PERINDOPRIL [Suspect]
     Active Substance: PERINDOPRIL
     Dosage: UNK
     Route: 065
  12. FUROSEMIDE [Suspect]
     Active Substance: FUROSEMIDE
     Dosage: UNK
     Route: 065
  13. AMLODIPINE\RAMIPRIL [Suspect]
     Active Substance: AMLODIPINE\RAMIPRIL
     Indication: Hypertension
     Dosage: RAMIPRIL / AMLODIPINE 2.5 / 2.5
     Route: 065
  14. RIVAROXABAN [Concomitant]
     Active Substance: RIVAROXABAN
     Dosage: UNK

REACTIONS (21)
  - Dyspnoea [Unknown]
  - Hyperlipidaemia [Unknown]
  - Coronary artery stenosis [Unknown]
  - Illness [Unknown]
  - Cardiac aneurysm [Unknown]
  - Fatigue [Unknown]
  - Electrocardiogram ST segment elevation [Unknown]
  - Decreased appetite [Unknown]
  - Pallor [Unknown]
  - Hypotension [Unknown]
  - Chest pain [Unknown]
  - Electrocardiogram Q wave abnormal [Unknown]
  - Coronary artery occlusion [Unknown]
  - Rales [Unknown]
  - Exercise tolerance decreased [Unknown]
  - Depression [Unknown]
  - Insomnia [Unknown]
  - Macrocytosis [Unknown]
  - Chest pain [Recovered/Resolved]
  - Dizziness [Unknown]
  - Peripheral coldness [Unknown]
